FAERS Safety Report 5193935-6 (Version None)
Quarter: 2006Q4

REPORT INFORMATION
  Report Type: 
  Country: None (occurrence: None)
  Receive Date: 20061228
  Receipt Date: 20061219
  Transmission Date: 20070319
  Serious: Yes (Other)
  Sender: FDA-Public Use
  Company Number: 2006UW28260

PATIENT
  Age: 67 Year
  Sex: Male
  Weight: 72.6 kg

DRUGS (7)
  1. SEROQUEL [Suspect]
     Indication: DEPRESSION
     Route: 048
  2. AMBIEN CR [Concomitant]
  3. PROZAC [Concomitant]
  4. XANAX [Concomitant]
  5. COREG [Concomitant]
  6. DIGOXIN [Concomitant]
  7. OXYCONTIN [Concomitant]

REACTIONS (3)
  - APHASIA [None]
  - DYSARTHRIA [None]
  - SENSATION OF HEAVINESS [None]
